FAERS Safety Report 7488626-2 (Version None)
Quarter: 2011Q2

REPORT INFORMATION
  Report Type: 
  Country: None (occurrence: None)
  Receive Date: 20110518
  Receipt Date: 20110510
  Transmission Date: 20111010
  Serious: Yes (Hospitalization, Disabling)
  Sender: FDA-Public Use
  Company Number: A0855970A

PATIENT
  Age: 33 Year
  Sex: Female

DRUGS (1)
  1. LAMICTAL [Suspect]
     Indication: BIPOLAR DISORDER
     Route: 048
     Dates: end: 20060401

REACTIONS (21)
  - SKIN EXFOLIATION [None]
  - HYPOPHAGIA [None]
  - ONYCHOMADESIS [None]
  - SKIN DEPIGMENTATION [None]
  - SCAR [None]
  - MUCOUS MEMBRANE DISORDER [None]
  - ABNORMAL LOSS OF WEIGHT [None]
  - SWELLING [None]
  - INJURY [None]
  - ALOPECIA [None]
  - URTICARIA [None]
  - SKIN LESION [None]
  - THERMAL BURN [None]
  - BLINDNESS [None]
  - STEVENS-JOHNSON SYNDROME [None]
  - RASH [None]
  - PRURITUS [None]
  - HYPERSENSITIVITY [None]
  - SKIN DISCOLOURATION [None]
  - TOXIC EPIDERMAL NECROLYSIS [None]
  - DRUG HYPERSENSITIVITY [None]
